FAERS Safety Report 15365334 (Version 1)
Quarter: 2018Q3

REPORT INFORMATION
  Report Type: Spontaneous
  Country: US (occurrence: US)
  Receive Date: 20180910
  Receipt Date: 20180910
  Transmission Date: 20181010
  Serious: No
  Sender: FDA-Public Use
  Company Number: US-PFIZER INC-2018359682

PATIENT
  Sex: Female

DRUGS (3)
  1. ZOLADEX [GOSERELIN] [Concomitant]
     Dosage: UNK
  2. EFFEXOR [Suspect]
     Active Substance: VENLAFAXINE HYDROCHLORIDE
     Indication: HOT FLUSH
     Dosage: UNK
  3. TAMOXIFEN [Concomitant]
     Active Substance: TAMOXIFEN
     Dosage: UNK

REACTIONS (2)
  - Drug ineffective for unapproved indication [Recovering/Resolving]
  - Vulvovaginal dryness [Recovering/Resolving]
